FAERS Safety Report 9132048 (Version 2)
Quarter: 2013Q1

REPORT INFORMATION
  Report Type: Spontaneous
  Country: AR (occurrence: AR)
  Receive Date: 20130208
  Receipt Date: 20130306
  Transmission Date: 20140127
  Serious: Yes (Death)
  Sender: FDA-Public Use
  Company Number: AR-ROCHE-1188602

PATIENT
  Sex: Male

DRUGS (2)
  1. ZELBORAF [Suspect]
     Indication: MALIGNANT MELANOMA
     Route: 048
     Dates: start: 201211, end: 201302
  2. TIMOSINE [Concomitant]
     Indication: MALIGNANT MELANOMA

REACTIONS (2)
  - Disease progression [Fatal]
  - Drug ineffective [Unknown]
